FAERS Safety Report 17499744 (Version 1)
Quarter: 2020Q1

REPORT INFORMATION
  Report Type: Spontaneous
  Country: US (occurrence: US)
  Receive Date: 20200304
  Receipt Date: 20200304
  Transmission Date: 20200409
  Serious: Yes (Other)
  Sender: FDA-Public Use
  Company Number: US-BAXTER-2020BAX004442

PATIENT
  Sex: Male

DRUGS (4)
  1. CYCLOPHOSPHAMIDE FOR INJECTION, USP [Suspect]
     Active Substance: CYCLOPHOSPHAMIDE
     Indication: DISEASE PROGRESSION
     Route: 065
     Dates: start: 201807
  2. FLUDARABINE [Suspect]
     Active Substance: FLUDARABINE PHOSPHATE
     Indication: DISEASE PROGRESSION
     Route: 065
     Dates: start: 201807
  3. CYCLOPHOSPHAMIDE FOR INJECTION, USP [Suspect]
     Active Substance: CYCLOPHOSPHAMIDE
     Indication: WALDENSTROM^S MACROGLOBULINAEMIA
  4. FLUDARABINE [Suspect]
     Active Substance: FLUDARABINE PHOSPHATE
     Indication: WALDENSTROM^S MACROGLOBULINAEMIA

REACTIONS (3)
  - Cytokine release syndrome [Unknown]
  - Neurotoxicity [Unknown]
  - Pancytopenia [Unknown]
